FAERS Safety Report 21194870 (Version 1)
Quarter: 2022Q3

REPORT INFORMATION
  Report Type: Spontaneous
  Country: FR (occurrence: FR)
  Receive Date: 20220810
  Receipt Date: 20220810
  Transmission Date: 20221027
  Serious: Yes (Hospitalization)
  Sender: FDA-Public Use
  Company Number: FR-AFSSAPS-TS20221703

PATIENT
  Age: 86 Year
  Sex: Female
  Weight: 81.1 kg

DRUGS (4)
  1. LERCANIDIPINE [Suspect]
     Active Substance: LERCANIDIPINE
     Indication: Hypertension
     Dosage: 20 MILLIGRAM, DAILY
     Route: 048
  2. RAMIPRIL [Suspect]
     Active Substance: RAMIPRIL
     Indication: Hypertension
     Dosage: 5 MILLIGRAM, BID
     Route: 048
  3. SERTRALINE [Suspect]
     Active Substance: SERTRALINE HYDROCHLORIDE
     Indication: Depression
     Dosage: 50 MILLIGRAM, DAILY
     Route: 048
     Dates: start: 202203, end: 20220616
  4. TRIMEBUTINE [Suspect]
     Active Substance: TRIMEBUTINE
     Indication: Constipation
     Dosage: UNK
     Route: 048
     Dates: start: 20220609, end: 202206

REACTIONS (1)
  - Hyponatraemia [Recovered/Resolved]
